FAERS Safety Report 17208429 (Version 1)
Quarter: 2019Q4

REPORT INFORMATION
  Report Type: Spontaneous
  Country: SE (occurrence: SE)
  Receive Date: 20191227
  Receipt Date: 20191227
  Transmission Date: 20200122
  Serious: Yes (Other)
  Sender: FDA-Public Use
  Company Number: SE-MYLANLABS-2019M1127473

PATIENT
  Age: 60 Year
  Sex: Female

DRUGS (2)
  1. FURADANTIN [Suspect]
     Active Substance: NITROFURANTOIN
     Indication: BACTERIURIA
     Dosage: BEHANDLINGSTID 5 DAGAR
     Route: 048
     Dates: start: 201708
  2. VENLAFAXIN [Concomitant]
     Active Substance: VENLAFAXINE HYDROCHLORIDE
     Dosage: UNK

REACTIONS (1)
  - Organising pneumonia [Recovered/Resolved]

NARRATIVE: CASE EVENT DATE: 2017
